FAERS Safety Report 24277821 (Version 1)
Quarter: 2024Q3

REPORT INFORMATION
  Report Type: Report from Study
  Country: US (occurrence: US)
  Receive Date: 20240903
  Receipt Date: 20240903
  Transmission Date: 20241016
  Serious: Yes (Hospitalization)
  Sender: ABBVIE
  Company Number: US-ABBVIE-5901942

PATIENT
  Sex: Male

DRUGS (1)
  1. VENCLEXTA [Suspect]
     Active Substance: VENETOCLAX
     Indication: Chronic lymphocytic leukaemia
     Dosage: 200MG (2 PILLS) IN THE AM AND 200MG (2 PILLS) IN THE PM
     Route: 048
     Dates: start: 20231115

REACTIONS (2)
  - Bladder cancer [Unknown]
  - Product use complaint [Unknown]
